FAERS Safety Report 7208957-0 (Version None)
Quarter: 2010Q4

REPORT INFORMATION
  Report Type: 
  Country: None (occurrence: None)
  Receive Date: 20101222
  Receipt Date: 20101217
  Transmission Date: 20110411
  Serious: Yes (Hospitalization)
  Sender: FDA-Public Use
  Company Number: 2010SP005950

PATIENT
  Age: 30 Year
  Sex: Female
  Weight: 113.3993 kg

DRUGS (4)
  1. NUVARING [Suspect]
     Indication: CONTRACEPTION
     Dosage: VAG
     Route: 067
     Dates: start: 20080201, end: 20080303
  2. ALBUTEROL [Concomitant]
  3. FLOVENT [Concomitant]
  4. METOPROLOL TARTRATE [Concomitant]

REACTIONS (28)
  - ARTHRALGIA [None]
  - ASTHMA [None]
  - BACK PAIN [None]
  - CHEST DISCOMFORT [None]
  - CONDITION AGGRAVATED [None]
  - DEEP VEIN THROMBOSIS [None]
  - DEPRESSION [None]
  - DYSPNOEA [None]
  - EYE SWELLING [None]
  - FALL [None]
  - FIBRIN D DIMER INCREASED [None]
  - GAIT DISTURBANCE [None]
  - GASTROINTESTINAL DISORDER [None]
  - GASTROOESOPHAGEAL REFLUX DISEASE [None]
  - HAEMORRHAGIC ANAEMIA [None]
  - HYPERTENSION [None]
  - LOSS OF EMPLOYMENT [None]
  - MICROCYTIC ANAEMIA [None]
  - PAIN IN JAW [None]
  - PERNICIOUS ANAEMIA [None]
  - PLATELET COUNT INCREASED [None]
  - PRESYNCOPE [None]
  - PULMONARY EMBOLISM [None]
  - SCOLIOSIS [None]
  - SPINAL OSTEOARTHRITIS [None]
  - SUICIDAL IDEATION [None]
  - THROMBOSIS [None]
  - VITAMIN D DEFICIENCY [None]
